FAERS Safety Report 16251867 (Version 1)
Quarter: 2019Q2

REPORT INFORMATION
  Report Type: Spontaneous
  Country: GB (occurrence: GB)
  Receive Date: 20190429
  Receipt Date: 20190429
  Transmission Date: 20190711
  Serious: Yes (Other)
  Sender: FDA-Public Use
  Company Number: GB-FRESENIUS KABI-FK201904800

PATIENT
  Age: 32 Year
  Sex: Female

DRUGS (6)
  1. LACTATED RINGERS SOLUTION [Suspect]
     Active Substance: CALCIUM CHLORIDE\POTASSIUM CHLORIDE\SODIUM CHLORIDE\SODIUM LACTATE
     Indication: HYPOTENSION
     Dosage: UNK
     Route: 042
  2. SODIUM CHLORIDE. [Concomitant]
     Active Substance: SODIUM CHLORIDE
     Indication: HYPOTENSION
     Dosage: UNK
     Route: 042
  3. WATER. [Concomitant]
     Active Substance: WATER
     Indication: HYPOTENSION
  4. OXYTOCIN. [Concomitant]
     Active Substance: OXYTOCIN
     Indication: HYPOTENSION
  5. ANESTHETICS [Concomitant]
     Active Substance: UNSPECIFIED INGREDIENT
  6. DINOPROSTONE. [Concomitant]
     Active Substance: DINOPROSTONE

REACTIONS (3)
  - Confusional state [Recovered/Resolved]
  - Exposure during pregnancy [Recovered/Resolved]
  - Hyponatraemia [Recovered/Resolved]
